FAERS Safety Report 18340325 (Version 1)
Quarter: 2020Q4

REPORT INFORMATION
  Report Type: Spontaneous
  Country: US (occurrence: US)
  Receive Date: 20201002
  Receipt Date: 20201002
  Transmission Date: 20210113
  Serious: No
  Sender: FDA-Public Use
  Company Number: US-PERRIGO-19US015428

PATIENT
  Sex: Male

DRUGS (2)
  1. NICOTINE POLACRILEX [Suspect]
     Active Substance: NICOTINE
     Indication: SMOKING CESSATION THERAPY
     Dosage: 2 MG, 7 TO 8 TIMES DAILY, PRN
     Route: 002
     Dates: start: 2017, end: 201912
  2. NICOTINE POLACRILEX [Suspect]
     Active Substance: NICOTINE
     Indication: SMOKING CESSATION THERAPY
     Dosage: 2 MG, 7 TO 8 TIMES DAILY, PRN
     Route: 002
     Dates: start: 201908, end: 201911

REACTIONS (3)
  - Renal pain [Recovering/Resolving]
  - Nicotine dependence [Unknown]
  - Chromaturia [Recovering/Resolving]

NARRATIVE: CASE EVENT DATE: 201910
